FAERS Safety Report 4282272-X (Version None)
Quarter: 2004Q1

REPORT INFORMATION
  Report Type: 
  Country: None (occurrence: None)
  Receive Date: 20040112
  Receipt Date: 20030130
  Transmission Date: 20041129
  Serious: Yes (Other)
  Sender: FDA-Public Use
  Company Number: NSADSS2003005487

PATIENT
  Sex: Male

DRUGS (5)
  1. REOPRO [Suspect]
     Indication: ILL-DEFINED DISORDER
     Dosage: 1 IN 1 AS NECESSARY, INTRAVENOUS BOLUS
     Route: 040
  2. ASPIRIN [Concomitant]
  3. PLAVIX [Concomitant]
  4. HEPARIN SODIUM [Concomitant]
  5. CLOPIDOGREL BISULFATE [Concomitant]

REACTIONS (1)
  - THROMBOCYTOPENIA [None]
